FAERS Safety Report 9310574 (Version 4)
Quarter: 2013Q4

REPORT INFORMATION
  Report Type: Spontaneous
  Country: US (occurrence: US)
  Receive Date: 20130527
  Receipt Date: 20131016
  Transmission Date: 20140711
  Serious: No
  Sender: FDA-Public Use
  Company Number: US-009507513-1305USA014968

PATIENT
  Age: 64 Year
  Sex: Male

DRUGS (4)
  1. PEGINTRON [Suspect]
     Indication: HEPATITIS C
     Dosage: REDIPEN, DOSE AND FREQUENCY UNKNOWN
     Dates: start: 20130423, end: 2013
  2. PEGINTRON [Suspect]
     Dosage: REDIPEN, DOSE CUT INTO HALF
     Dates: start: 2013
  3. REBETOL [Suspect]
     Indication: HEPATITIS C
     Dosage: UNK
     Route: 048
     Dates: start: 20130423
  4. VICTRELIS [Suspect]
     Indication: HEPATITIS C
     Dosage: UNK
     Route: 048
     Dates: start: 20130522

REACTIONS (15)
  - Hypokalaemia [Unknown]
  - Blood potassium decreased [Unknown]
  - Photophobia [Unknown]
  - Visual impairment [Unknown]
  - Photophobia [Recovering/Resolving]
  - Eye pain [Recovering/Resolving]
  - Insomnia [Unknown]
  - Diarrhoea [Unknown]
  - White blood cell count decreased [Unknown]
  - Leukopenia [Unknown]
  - Dizziness [Unknown]
  - Asthenia [Unknown]
  - Blood pressure decreased [Unknown]
  - Fatigue [Unknown]
  - White blood cell count decreased [Unknown]
